FAERS Safety Report 7135757-2 (Version None)
Quarter: 2010Q4

REPORT INFORMATION
  Report Type: 
  Country: None (occurrence: None)
  Receive Date: 20101203
  Receipt Date: 20101125
  Transmission Date: 20110411
  Serious: Yes (Hospitalization)
  Sender: FDA-Public Use
  Company Number: GR-GILEAD-2010-0031760

PATIENT
  Sex: Female
  Weight: 55 kg

DRUGS (9)
  1. ATRIPLA [Suspect]
     Indication: HIV INFECTION
     Route: 048
     Dates: start: 20100817, end: 20100827
  2. RIFATER [Concomitant]
     Indication: LYMPH NODE TUBERCULOSIS
     Route: 048
     Dates: start: 20100126, end: 20100817
  3. RIFINAH [Concomitant]
     Indication: LYMPH NODE TUBERCULOSIS
     Route: 048
     Dates: start: 20100101
  4. BESIX [Concomitant]
     Indication: LYMPH NODE TUBERCULOSIS
     Route: 048
     Dates: start: 20100126
  5. LASIX [Concomitant]
     Indication: HIV INFECTION
     Route: 048
     Dates: start: 20100817, end: 20100907
  6. LASIX [Concomitant]
     Indication: NEPHROPATHY
  7. RIFAMPICIN [Concomitant]
     Indication: LYMPH NODE TUBERCULOSIS
     Dates: start: 20100126
  8. ISONIAZID [Concomitant]
     Indication: LYMPH NODE TUBERCULOSIS
     Dates: start: 20100126
  9. PYRAZINAMIDE [Concomitant]
     Indication: LYMPH NODE TUBERCULOSIS
     Dates: start: 20100126

REACTIONS (1)
  - MYALGIA [None]
